FAERS Safety Report 8827620 (Version 2)
Quarter: 2012Q4

REPORT INFORMATION
  Report Type: 
  Country: US (occurrence: US)
  Receive Date: 20121008
  Receipt Date: 20121019
  Transmission Date: 20130627
  Serious: Yes (Other)
  Sender: FDA-Public Use
  Company Number: US-SANOFI-AVENTIS-2012SA070905

PATIENT
  Age: 75 Year
  Sex: Female
  Weight: 86.18 kg

DRUGS (8)
  1. LANTUS SOLOSTAR [Suspect]
     Indication: TYPE II DIABETES MELLITUS
     Dosage: 46 units daily, also reproted started taking 44 units 7-8 years ago.
     Route: 058
     Dates: start: 199209
  2. SOLOSTAR [Suspect]
     Indication: TYPE II DIABETES MELLITUS
     Dates: start: 199209
  3. SOLOSTAR [Suspect]
     Indication: TYPE II DIABETES MELLITUS
     Dates: start: 199209
  4. LEVOTHYROXINE SODIUM [Concomitant]
     Dates: start: 1996
  5. AMLODIPINE BESILATE [Concomitant]
     Dates: start: 2010
  6. COREG [Concomitant]
     Dates: start: 2011
  7. ALL OTHER THERAPEUTIC PRODUCTS [Concomitant]
     Dates: start: 2011
  8. HUMALOG [Concomitant]
     Dates: start: 1995

REACTIONS (1)
  - Rotator cuff repair [Unknown]
